FAERS Safety Report 22620313 (Version 1)
Quarter: 2023Q2

REPORT INFORMATION
  Report Type: Report from Study
  Country: CA (occurrence: CA)
  Receive Date: 20230620
  Receipt Date: 20230620
  Transmission Date: 20230721
  Serious: Yes (Other)
  Sender: FDA-Public Use
  Company Number: CA-TAKEDA-2023TUS059185

PATIENT
  Age: 55 Year
  Sex: Female

DRUGS (15)
  1. VEDOLIZUMAB [Suspect]
     Active Substance: VEDOLIZUMAB
     Indication: Crohn^s disease
     Dosage: 300 MILLIGRAM
     Route: 042
     Dates: start: 20170201
  2. VEDOLIZUMAB [Suspect]
     Active Substance: VEDOLIZUMAB
     Dosage: 300 MILLIGRAM, Q6WEEKS
     Route: 042
     Dates: start: 20220221
  3. METOPROLOL [Concomitant]
     Active Substance: METOPROLOL
     Dosage: 12.5 MILLIGRAM
     Route: 048
     Dates: start: 2013
  4. TOVIAZ [Concomitant]
     Active Substance: FESOTERODINE FUMARATE
     Dosage: 4 MILLIGRAM
     Route: 048
     Dates: start: 2021
  5. BACLOFEN [Concomitant]
     Active Substance: BACLOFEN
     Dosage: 10 MILLIGRAM
     Route: 048
     Dates: start: 2013
  6. BETAHISTINE [Concomitant]
     Active Substance: BETAHISTINE
     Dosage: 8 MILLIGRAM
     Route: 048
     Dates: start: 2018
  7. LORAZEPAM [Concomitant]
     Active Substance: LORAZEPAM
     Dosage: 5 MILLIGRAM
     Route: 048
     Dates: start: 2015
  8. LATAPROST [Concomitant]
     Dosage: UNK UNK, BID
  9. VITAMIN D [Concomitant]
     Active Substance: VITAMIN D NOS
     Dosage: UNK
     Route: 048
     Dates: start: 2017
  10. B50 COMPLEX [Concomitant]
     Dosage: UNK
     Route: 048
     Dates: start: 2010
  11. MYLAN ESOMEPRAZOLE [Concomitant]
     Dosage: 40 MILLIGRAM
     Route: 048
     Dates: start: 20220922
  12. CELEBREX [Concomitant]
     Active Substance: CELECOXIB
     Dosage: 400 MILLIGRAM
     Route: 048
     Dates: start: 20220520
  13. FLUCONAZOLE [Concomitant]
     Active Substance: FLUCONAZOLE
     Indication: Fungal infection
     Dosage: 100 MILLIGRAM
     Route: 048
  14. BUTYLSCOPOLAMINE BROMIDE [Concomitant]
     Active Substance: BUTYLSCOPOLAMINE BROMIDE
     Dosage: 10 MILLIGRAM
     Dates: start: 20230214
  15. OMEPRAZOLE [Concomitant]
     Active Substance: OMEPRAZOLE
     Dosage: 60 MILLIGRAM
     Route: 048
     Dates: start: 20230220

REACTIONS (2)
  - Non-alcoholic fatty liver [Not Recovered/Not Resolved]
  - Off label use [Unknown]

NARRATIVE: CASE EVENT DATE: 20220621
